FAERS Safety Report 12106183 (Version 2)
Quarter: 2016Q2

REPORT INFORMATION
  Report Type: Spontaneous
  Country: US (occurrence: US)
  Receive Date: 20160223
  Receipt Date: 20160427
  Transmission Date: 20160815
  Serious: No
  Sender: FDA-Public Use
  Company Number: US-LEO PHARMA-240318

PATIENT
  Age: 61 Year
  Sex: Female

DRUGS (2)
  1. PICATO [Suspect]
     Active Substance: INGENOL MEBUTATE
     Indication: SOLAR LENTIGO
     Route: 061
     Dates: start: 20160216, end: 20160218
  2. BACTRIM [Concomitant]
     Active Substance: SULFAMETHOXAZOLE\TRIMETHOPRIM
     Indication: PRODUCT USED FOR UNKNOWN INDICATION

REACTIONS (5)
  - Drug administered at inappropriate site [Unknown]
  - Application site pustules [Recovered/Resolved]
  - Application site erythema [Not Recovered/Not Resolved]
  - Application site inflammation [Recovered/Resolved]
  - Application site infection [Recovered/Resolved]

NARRATIVE: CASE EVENT DATE: 20160218
